FAERS Safety Report 7371493-5 (Version None)
Quarter: 2011Q1

REPORT INFORMATION
  Report Type: 
  Country: None (occurrence: None)
  Receive Date: 20110322
  Receipt Date: 20110322
  Transmission Date: 20110831
  Serious: Yes (Other)
  Sender: FDA-Public Use
  Company Number: None

PATIENT
  Age: 20 Year
  Sex: Female
  Weight: 77.1115 kg

DRUGS (1)
  1. TOPAMAX [Suspect]
     Indication: MIGRAINE
     Dosage: 2 25MG + 2 25MG MORNING + NIGHT PO
     Route: 048
     Dates: start: 20090701, end: 20100730

REACTIONS (2)
  - MEMORY IMPAIRMENT [None]
  - COGNITIVE DISORDER [None]
